FAERS Safety Report 15947167 (Version 1)
Quarter: 2019Q1

REPORT INFORMATION
  Report Type: Report from Study
  Country: DE (occurrence: DE)
  Receive Date: 20190212
  Receipt Date: 20190212
  Transmission Date: 20190417
  Serious: Yes (Death, Hospitalization, Other)
  Sender: FDA-Public Use
  Company Number: DE-ROCHE-1870275

PATIENT
  Age: 55 Year
  Sex: Male
  Weight: 60 kg

DRUGS (9)
  1. OXALIPLATIN. [Concomitant]
     Active Substance: OXALIPLATIN
     Indication: COLORECTAL CANCER METASTATIC
     Route: 042
     Dates: start: 20160614, end: 20160614
  2. ZALTRAP [Concomitant]
     Active Substance: ZIV-AFLIBERCEPT
     Indication: COLORECTAL CANCER
     Dosage: ONCE
     Route: 065
     Dates: start: 20161026
  3. FOLINIC ACID [Concomitant]
     Active Substance: LEUCOVORIN
     Indication: COLORECTAL CANCER
     Dosage: ONCE
     Route: 065
     Dates: start: 20161026
  4. BEVACIZUMAB. [Suspect]
     Active Substance: BEVACIZUMAB
     Dosage: LAST DOSE
     Route: 042
     Dates: end: 20160927
  5. BEVACIZUMAB. [Suspect]
     Active Substance: BEVACIZUMAB
     Indication: COLORECTAL CANCER METASTATIC
     Route: 042
     Dates: start: 20160614
  6. OXALIPLATIN. [Concomitant]
     Active Substance: OXALIPLATIN
     Dosage: DAY 1-14, FOLLOWED BY 7 DAYS BREAK
     Route: 042
     Dates: start: 20160927, end: 20160927
  7. IRINOTECAN [Concomitant]
     Active Substance: IRINOTECAN
     Indication: COLORECTAL CANCER
     Dosage: ONCE
     Route: 065
     Dates: start: 20161026
  8. FLUOROURACIL. [Concomitant]
     Active Substance: FLUOROURACIL
     Indication: COLORECTAL CANCER
     Dosage: ONCE
     Route: 065
     Dates: start: 20161026
  9. XELODA [Suspect]
     Active Substance: CAPECITABINE
     Indication: COLORECTAL CANCER
     Dosage: DAY 1-14, FOLLOWED BY 7 DAYS BREAK
     Route: 048
     Dates: start: 20160614, end: 20160927

REACTIONS (13)
  - Metastases to adrenals [Unknown]
  - Ascites [Unknown]
  - Hiatus hernia [Unknown]
  - Subileus [Unknown]
  - Pain [Unknown]
  - Metastases to peritoneum [Unknown]
  - Bronchial carcinoma [Unknown]
  - Metastases to spleen [Unknown]
  - Vomiting [Unknown]
  - General physical health deterioration [Unknown]
  - Gastrooesophageal reflux disease [Unknown]
  - Acute kidney injury [Unknown]
  - Cachexia [Unknown]

NARRATIVE: CASE EVENT DATE: 20161030
